FAERS Safety Report 9133701 (Version 1)
Quarter: 2013Q1

REPORT INFORMATION
  Report Type: Spontaneous
  Country: US (occurrence: US)
  Receive Date: 20130302
  Receipt Date: 20130302
  Transmission Date: 20140127
  Serious: Yes (Other)
  Sender: FDA-Public Use
  Company Number: PHHY2013US020183

PATIENT
  Age: 59 Year
  Sex: Male

DRUGS (6)
  1. METOPROLOL [Suspect]
  2. TOPROL XL [Suspect]
     Dosage: UNK UKN, UNK
     Dates: start: 20130217
  3. LIPITOR [Concomitant]
  4. LEVOTHYROXINE [Concomitant]
  5. ASACOL [Concomitant]
  6. AMITRIPTYLINE [Concomitant]

REACTIONS (4)
  - Pharyngeal oedema [Unknown]
  - Heart rate increased [Unknown]
  - Malaise [Unknown]
  - Wrong technique in drug usage process [Unknown]
